FAERS Safety Report 22340356 (Version 1)
Quarter: 2023Q2

REPORT INFORMATION
  Report Type: Spontaneous
  Country: GB (occurrence: None)
  Receive Date: 20230518
  Receipt Date: 20230518
  Transmission Date: 20230721
  Serious: Yes (Other)
  Sender: FDA-Public Use
  Company Number: GB-Merck Healthcare KGaA-9402063

PATIENT
  Age: 67 Year
  Sex: Male

DRUGS (5)
  1. BAVENCIO [Suspect]
     Active Substance: AVELUMAB
     Indication: Clear cell renal cell carcinoma
  2. AXITINIB [Suspect]
     Active Substance: AXITINIB
     Indication: Clear cell renal cell carcinoma
  3. AXITINIB [Suspect]
     Active Substance: AXITINIB
     Dosage: FROM WEEK 10 ONWARDS
     Dates: end: 202111
  4. AMLODIPINE [Concomitant]
     Active Substance: AMLODIPINE BESYLATE
     Indication: Hypertension
     Dates: start: 201910
  5. ENALAPRIL [Concomitant]
     Active Substance: ENALAPRIL
     Indication: Hypertension
     Dates: start: 201910

REACTIONS (5)
  - Retinal vein occlusion [Unknown]
  - Blood pressure increased [Unknown]
  - Dry mouth [Unknown]
  - Diarrhoea [Unknown]
  - Rash pruritic [Recovered/Resolved]
